FAERS Safety Report 4941168-8 (Version None)
Quarter: 2006Q1

REPORT INFORMATION
  Report Type: 
  Country: None (occurrence: None)
  Receive Date: 20060310
  Receipt Date: 20060310
  Transmission Date: 20060701
  Serious: Yes (Hospitalization)
  Sender: FDA-Public Use
  Company Number: None

PATIENT
  Age: 59 Year
  Sex: Male
  Weight: 62.1428 kg

DRUGS (18)
  1. HYDROXYUREA [Suspect]
     Indication: NEOPLASM MALIGNANT
     Dosage: 500 MG PO QHS
     Route: 048
     Dates: start: 20060305, end: 20060308
  2. FLUOROURACIL [Suspect]
     Indication: NEOPLASM MALIGNANT
     Dosage: 1056 MG CI IV X5 Q2W
     Route: 042
     Dates: start: 20060306, end: 20060308
  3. ALLOPURINOL [Concomitant]
  4. ATENOLOL [Concomitant]
  5. CODEINE PHOSPHATE AND ACETAMINOPHEN [Concomitant]
  6. CHOCHICINE [Concomitant]
  7. DUCOSATE NA [Concomitant]
  8. FELODIPINE [Concomitant]
  9. FERROUS SULFATE TAB [Concomitant]
  10. VANCOMYCIN [Concomitant]
  11. CEFEPIME [Concomitant]
  12. FLAGYL [Concomitant]
  13. LISINOPRIL [Concomitant]
  14. NYSTATIN [Concomitant]
  15. OMEPRAZOLE [Concomitant]
  16. PENTOXIFYLLINE [Concomitant]
  17. PROCHOROPERAZINE [Concomitant]
  18. TRIAMCINOLONE ACETONIDE [Concomitant]

REACTIONS (5)
  - BACTERIA STOOL IDENTIFIED [None]
  - CLOSTRIDIAL INFECTION [None]
  - HYPOXIA [None]
  - PYREXIA [None]
  - RESPIRATORY DISTRESS [None]
